FAERS Safety Report 14999159 (Version 1)
Quarter: 2018Q2

REPORT INFORMATION
  Report Type: Spontaneous
  Country: DE (occurrence: DE)
  Receive Date: 20180612
  Receipt Date: 20180612
  Transmission Date: 20180711
  Serious: Yes (Hospitalization)
  Sender: FDA-Public Use
  Company Number: DE-TEVA-2018-DE-905614

PATIENT
  Age: 56 Year
  Sex: Female
  Weight: 86 kg

DRUGS (9)
  1. PERTUZUMAB. [Suspect]
     Active Substance: PERTUZUMAB
     Dosage: EVERY 3 WEEKS
     Route: 048
  2. DOCETAXEL. [Suspect]
     Active Substance: DOCETAXEL
     Dosage: EVERY 3 WEEKS
     Route: 048
  3. JODETTEN DEPOT [Concomitant]
     Dosage: 1X/W
     Route: 048
  4. RAMICLAIR 5MG/25MG PLUS [Concomitant]
     Dosage: 5|25 MG, 1-0-0
     Route: 048
  5. MCP [Suspect]
     Active Substance: METOCLOPRAMIDE HYDROCHLORIDE
     Dosage: 1-0-1
     Route: 048
  6. TRASTUZUMAB. [Suspect]
     Active Substance: TRASTUZUMAB
     Dosage: EVERY 3 WEEKS
     Route: 048
  7. CEBION [Concomitant]
     Dosage: 1X/TGL.
     Route: 048
  8. PANTOZOL 40 MG [Concomitant]
     Dosage: 40 MG, 1-0-0
     Route: 048
  9. CARBOPLATIN. [Suspect]
     Active Substance: CARBOPLATIN
     Dosage: EVERY 3 WEEKS
     Route: 048

REACTIONS (5)
  - Circulatory collapse [Unknown]
  - Mucosal inflammation [Unknown]
  - Dizziness [Unknown]
  - Nausea [Unknown]
  - Fatigue [Unknown]
